FAERS Safety Report 15786214 (Version 1)
Quarter: 2019Q1

REPORT INFORMATION
  Report Type: Spontaneous
  Country: CN (occurrence: CN)
  Receive Date: 20190103
  Receipt Date: 20190103
  Transmission Date: 20190417
  Serious: Yes (Life-Threatening, Hospitalization)
  Sender: FDA-Public Use
  Company Number: CN-BAYER-2019-000932

PATIENT
  Age: 78 Year
  Sex: Female
  Weight: 50 kg

DRUGS (2)
  1. NICERGOLINE [Suspect]
     Active Substance: NICERGOLINE
     Indication: DELIRIUM
     Dosage: 1 DF, BID
     Route: 048
     Dates: start: 20181111, end: 20181113
  2. BAYASPIRIN 100 MG [Suspect]
     Active Substance: ASPIRIN
     Indication: DELIRIUM
     Dosage: 1 DF, QD
     Route: 048
     Dates: start: 20181111, end: 20181113

REACTIONS (2)
  - Dizziness [Recovering/Resolving]
  - Coma [Recovering/Resolving]

NARRATIVE: CASE EVENT DATE: 20181113
